FAERS Safety Report 9406563 (Version 1)
Quarter: 2013Q3

REPORT INFORMATION
  Report Type: Spontaneous
  Country: US (occurrence: US)
  Receive Date: 20130718
  Receipt Date: 20130718
  Transmission Date: 20140515
  Serious: No
  Sender: FDA-Public Use
  Company Number: US-BAYER-2013-086237

PATIENT
  Sex: Female
  Weight: 68 kg

DRUGS (12)
  1. BETASERON [Suspect]
     Dosage: 0.25 ML, QOD
     Route: 058
  2. ZYRTEC [Concomitant]
     Dosage: 5 MG, UNK
  3. BENADRYL [Concomitant]
     Dosage: 25 MG, UNK
  4. SYNTHROID [Concomitant]
     Dosage: 100 ?G, UNK
  5. DDAVP [Concomitant]
     Dosage: 0.1 MG, UNK
  6. CABERGOLINE [Concomitant]
     Dosage: 0.5 MG, UNK
  7. MIGRAINE [Concomitant]
     Dosage: UNK
  8. AMANTADINE [Concomitant]
     Dosage: 100 MG, UNK
  9. IBUPROFEN [Concomitant]
     Dosage: 200 MG, UNK
  10. VITAMIN B12 [Concomitant]
     Dosage: 50 MCG
  11. VITAMIN D [Concomitant]
     Dosage: 400 U, UNK
  12. FEROTRINSIC [Concomitant]

REACTIONS (3)
  - Erythema [Unknown]
  - Pruritus [Unknown]
  - Oedema peripheral [Unknown]
